FAERS Safety Report 8033867-9 (Version None)
Quarter: 2012Q1

REPORT INFORMATION
  Report Type: 
  Country: None (occurrence: None)
  Receive Date: 20120110
  Receipt Date: 20120105
  Transmission Date: 20120608
  Serious: No
  Sender: FDA-Public Use
  Company Number: US-PFIZER INC-2012003886

PATIENT
  Sex: Female
  Weight: 58.503 kg

DRUGS (2)
  1. FLECTOR [Suspect]
     Indication: ANKLE FRACTURE
     Dosage: UNK, 2X/DAY
     Dates: start: 20111201
  2. FLECTOR [Suspect]
     Indication: NERVE BLOCK

REACTIONS (2)
  - WRONG TECHNIQUE IN DRUG USAGE PROCESS [None]
  - DRUG INEFFECTIVE [None]
